FAERS Safety Report 14583486 (Version 2)
Quarter: 2018Q3

REPORT INFORMATION
  Report Type: Spontaneous
  Country: US (occurrence: US)
  Receive Date: 20180228
  Receipt Date: 20180828
  Transmission Date: 20181010
  Serious: Yes (Hospitalization, Other)
  Sender: FDA-Public Use
  Company Number: US-BAYER-2018-036893

PATIENT
  Sex: Female

DRUGS (1)
  1. ALIQOPA [Suspect]
     Active Substance: COPANLISIB
     Indication: B-CELL LYMPHOMA
     Dosage: 60 MG, UNK
     Route: 042
     Dates: start: 20180215, end: 20180216

REACTIONS (3)
  - Hyperglycaemia [Recovered/Resolved]
  - B-cell lymphoma [None]
  - Hypertension [None]

NARRATIVE: CASE EVENT DATE: 20180219
